FAERS Safety Report 4942732-2 (Version None)
Quarter: 2006Q1

REPORT INFORMATION
  Report Type: 
  Country: None (occurrence: None)
  Receive Date: 20060314
  Receipt Date: 20060217
  Transmission Date: 20060701
  Serious: Yes (Disabling)
  Sender: FDA-Public Use
  Company Number: PHHO2006GB02880

PATIENT
  Age: 55 Year
  Sex: Female
  Weight: 48.7 kg

DRUGS (8)
  1. ZOLEDRONIC ACID [Suspect]
     Indication: METASTASES TO BONE
     Dosage: 4 MG
     Route: 042
     Dates: start: 20050517
  2. TAMOXIFEN CITRATE [Suspect]
     Indication: BREAST CANCER
     Dosage: 20 MG, UNK
     Route: 048
     Dates: start: 20050810
  3. CALCIUM GLUCONATE [Concomitant]
     Indication: METASTASES TO BONE
     Dosage: 500 MEQ, QD
     Route: 048
  4. VITAMIN D [Concomitant]
     Indication: METASTASES TO BONE
     Dosage: 400-500  IU, QD
     Route: 048
  5. SYMBICORT TURBUHALER ^DRACO^ [Suspect]
     Indication: EMPHYSEMA
     Dosage: 2 PUFFS, BID
  6. PHENYTOIN [Concomitant]
     Indication: EPILEPSY
     Dosage: 300 MG, UNK
     Route: 048
  7. GABAPENTIN [Concomitant]
     Indication: PAIN
     Dosage: 200 MG, UNK
     Route: 048
  8. CO-CODAMOL [Concomitant]
     Indication: PAIN
     Dosage: 30/500
     Route: 048

REACTIONS (2)
  - DISEASE PROGRESSION [None]
  - OSTEONECROSIS [None]
